FAERS Safety Report 24265754 (Version 1)
Quarter: 2024Q3

REPORT INFORMATION
  Report Type: Spontaneous
  Country: FR (occurrence: FR)
  Receive Date: 20240830
  Receipt Date: 20240830
  Transmission Date: 20241017
  Serious: Yes (Other)
  Sender: GLAXOSMITHKLINE
  Company Number: None

PATIENT

DRUGS (3)
  1. ALBUTEROL [Suspect]
     Active Substance: ALBUTEROL
     Indication: Product used for unknown indication
     Dosage: UNK
     Route: 055
     Dates: start: 20240730, end: 20240730
  2. LOXAPINE [Suspect]
     Active Substance: LOXAPINE
     Indication: Product used for unknown indication
     Dosage: 750 MG, QD (750 MG IN ONE DOSE AT 4AM)
     Route: 048
     Dates: start: 20240730, end: 20240730
  3. TESTOSTERONE [Concomitant]
     Active Substance: TESTOSTERONE
     Indication: Product used for unknown indication
     Dosage: 1 DF, MO
     Route: 065

REACTIONS (4)
  - Toxicity to various agents [Recovered/Resolved]
  - Dysaesthesia [Recovered/Resolved]
  - Dyspnoea [Recovered/Resolved]
  - Intentional product misuse [Not Recovered/Not Resolved]

NARRATIVE: CASE EVENT DATE: 20240730
